FAERS Safety Report 5828662-2 (Version None)
Quarter: 2008Q3

REPORT INFORMATION
  Report Type: 
  Country: None (occurrence: None)
  Receive Date: 20080731
  Receipt Date: 20080729
  Transmission Date: 20090109
  Serious: Yes (Other)
  Sender: FDA-Public Use
  Company Number: D0058219A

PATIENT
  Sex: Female

DRUGS (1)
  1. CEFUROXIME [Suspect]
     Dosage: 500MG UNKNOWN
     Route: 048
     Dates: start: 20080701, end: 20080701

REACTIONS (2)
  - AGEUSIA [None]
  - ANOSMIA [None]
